FAERS Safety Report 8862714 (Version 1)
Quarter: 2012Q4

REPORT INFORMATION
  Report Type: 
  Country: US (occurrence: US)
  Receive Date: 20121026
  Receipt Date: 20121026
  Transmission Date: 20130627
  Serious: Yes (Other)
  Sender: FDA-Public Use
  Company Number: US-PFIZER INC-2012268038

PATIENT
  Age: 79 Year
  Sex: Male
  Weight: 90.7 kg

DRUGS (5)
  1. LYRICA [Suspect]
     Indication: POST HERPETIC NEURALGIA
     Dosage: 50 mg, Daily
     Dates: start: 2011
  2. LYRICA [Suspect]
     Dosage: 300 mg, Daily
  3. LYRICA [Suspect]
     Dosage: 200 mg, Daily
  4. LYRICA [Suspect]
     Dosage: 150 mg, Daily
  5. LYRICA [Suspect]
     Dosage: 100 mg, daily
     Dates: start: 201210

REACTIONS (6)
  - Renal disorder [Unknown]
  - Drug ineffective [Unknown]
  - Tremor [Not Recovered/Not Resolved]
  - Somnolence [Not Recovered/Not Resolved]
  - Dizziness [Not Recovered/Not Resolved]
  - Pain [Not Recovered/Not Resolved]
